FAERS Safety Report 5510156-5 (Version None)
Quarter: 2007Q4

REPORT INFORMATION
  Report Type: 
  Country: None (occurrence: None)
  Receive Date: 20071108
  Receipt Date: 20071106
  Transmission Date: 20080405
  Serious: Yes (Hospitalization)
  Sender: FDA-Public Use
  Company Number: FR-BRISTOL-MYERS SQUIBB COMPANY-13970843

PATIENT
  Age: 60 Year
  Sex: Female

DRUGS (5)
  1. BICNU PWDR FOR INJ [Suspect]
     Indication: NON-HODGKIN'S LYMPHOMA
     Route: 042
     Dates: start: 20070818
  2. METHYLPREDNISOLONE [Suspect]
     Indication: NON-HODGKIN'S LYMPHOMA
     Route: 042
     Dates: start: 20070816, end: 20070820
  3. METHOTREXATE-TEVA [Suspect]
     Indication: NON-HODGKIN'S LYMPHOMA
     Route: 042
     Dates: start: 20070816
  4. ETOPOSIDE TEVA [Suspect]
     Indication: NON-HODGKIN'S LYMPHOMA
     Route: 042
     Dates: start: 20070817
  5. ELVORINE [Suspect]
     Indication: NON-HODGKIN'S LYMPHOMA
     Dosage: ELVORINE IV 175MG/17.5ML.
     Route: 042
     Dates: start: 20070817, end: 20070820

REACTIONS (1)
  - HYPERTHERMIA [None]
